FAERS Safety Report 25020217 (Version 1)
Quarter: 2025Q1

REPORT INFORMATION
  Report Type: Spontaneous
  Country: US (occurrence: US)
  Receive Date: 20250227
  Receipt Date: 20250227
  Transmission Date: 20250409
  Serious: Yes (Other)
  Sender: HIKMA
  Company Number: US-HIKMA PHARMACEUTICALS USA INC.-US-H14001-25-01816

PATIENT
  Age: 58 Year
  Sex: Female

DRUGS (3)
  1. AMPHETAMINE [Suspect]
     Active Substance: AMPHETAMINE
     Indication: Product used for unknown indication
     Route: 065
  2. METHAMPHETAMINE HYDROCHLORIDE [Suspect]
     Active Substance: METHAMPHETAMINE HYDROCHLORIDE
     Indication: Product used for unknown indication
     Route: 065
  3. OXYCODONE [Suspect]
     Active Substance: OXYCODONE
     Indication: Product used for unknown indication
     Route: 065

REACTIONS (8)
  - Speech disorder [Unknown]
  - Trismus [Unknown]
  - Muscle twitching [Unknown]
  - Dyskinesia [Unknown]
  - Mydriasis [Unknown]
  - Pupillary light reflex tests abnormal [Unknown]
  - Legal problem [Unknown]
  - Drug abuse [Unknown]

NARRATIVE: CASE EVENT DATE: 20241220
